FAERS Safety Report 9499102 (Version 6)
Quarter: 2014Q1

REPORT INFORMATION
  Report Type: Spontaneous
  Country: CA (occurrence: CA)
  Receive Date: 20130904
  Receipt Date: 20140319
  Transmission Date: 20141002
  Serious: Yes (Hospitalization, Other)
  Sender: FDA-Public Use
  Company Number: CA-ROCHE-1269734

PATIENT
  Sex: Female

DRUGS (9)
  1. XOLAIR [Suspect]
     Indication: ASTHMA
     Route: 058
     Dates: start: 20110204, end: 201302
  2. XOLAIR [Suspect]
     Route: 058
     Dates: start: 20130828
  3. XOLAIR [Suspect]
     Route: 058
     Dates: end: 201308
  4. NASACORT [Concomitant]
  5. ADVAIR [Concomitant]
  6. VENTOLIN [Concomitant]
  7. PREDNISONE [Concomitant]
  8. FLOVENT [Concomitant]
  9. SPIRIVA [Concomitant]

REACTIONS (10)
  - Addison^s disease [Recovered/Resolved]
  - Headache [Recovered/Resolved]
  - Syncope [Recovered/Resolved]
  - Adrenal insufficiency [Unknown]
  - Blood pressure decreased [Unknown]
  - Malaise [Unknown]
  - Hypokinesia [Unknown]
  - Lung infection [Unknown]
  - Nasopharyngitis [Unknown]
  - Influenza [Unknown]
